FAERS Safety Report 14051674 (Version 2)
Quarter: 2017Q4

REPORT INFORMATION
  Report Type: Spontaneous
  Country: GB (occurrence: GB)
  Receive Date: 20171006
  Receipt Date: 20171204
  Transmission Date: 20180321
  Serious: Yes (Death, Hospitalization, Other)
  Sender: FDA-Public Use
  Company Number: GB-ACCORD-059806

PATIENT
  Sex: Male

DRUGS (5)
  1. MIRTAZAPINE. [Concomitant]
     Active Substance: MIRTAZAPINE
     Indication: DEPRESSION
     Dosage: 7 X?ONE TO BE TAKEN AT NIGHT
     Route: 048
     Dates: end: 2016
  2. TRAMADOL/TRAMADOL HYDROCHLORIDE [Suspect]
     Active Substance: TRAMADOL HYDROCHLORIDE
     Indication: PRODUCT USED FOR UNKNOWN INDICATION
     Route: 048
     Dates: start: 2015
  3. LANSOPRAZOLE. [Concomitant]
     Active Substance: LANSOPRAZOLE
     Route: 048
     Dates: end: 2016
  4. ZAMADOL [Suspect]
     Active Substance: TRAMADOL HYDROCHLORIDE
     Indication: PAIN
     Dosage: 1500 MG, TOTAL (300MG 1/DAY ), PHARMACEUTICAL DOSE FORM (FREE TEXT): 212
     Route: 048
     Dates: start: 2016, end: 2016
  5. PREGABALIN. [Concomitant]
     Active Substance: PREGABALIN
     Dosage: 2100 MG, TOTAL (300MG 2/DAY) ONCE, PHARMACEUTICAL DOSE FORM (FREE TEXT):?5
     Route: 048
     Dates: start: 2016, end: 2016

REACTIONS (18)
  - Somnolence [Unknown]
  - Drug abuse [Fatal]
  - Seizure [Not Recovered/Not Resolved]
  - Loss of consciousness [Not Recovered/Not Resolved]
  - Circulatory collapse [Unknown]
  - Nervousness [Unknown]
  - Overdose [Unknown]
  - Toxicity to various agents [None]
  - Fall [None]
  - Fatigue [Unknown]
  - Heart rate irregular [Not Recovered/Not Resolved]
  - Pallor [Unknown]
  - Myocardial infarction [Fatal]
  - Facial bones fracture [None]
  - Prescription drug used without a prescription [Unknown]
  - Slow speech [Unknown]
  - Diarrhoea [Unknown]
  - Arteriosclerosis coronary artery [None]

NARRATIVE: CASE EVENT DATE: 2015
